FAERS Safety Report 17656114 (Version 2)
Quarter: 2020Q3

REPORT INFORMATION
  Report Type: Report from Study
  Country: US (occurrence: US)
  Receive Date: 20200410
  Receipt Date: 20200701
  Transmission Date: 20201102
  Serious: Yes (Other)
  Sender: FDA-Public Use
  Company Number: NVSC2020US096438

PATIENT
  Sex: Female

DRUGS (1)
  1. TRAVATAN Z [Suspect]
     Active Substance: TRAVOPROST
     Indication: PRODUCT USED FOR UNKNOWN INDICATION
     Dosage: UNK
     Route: 065
     Dates: start: 202003, end: 20200520

REACTIONS (7)
  - Dyspnoea [Unknown]
  - Drug hypersensitivity [Unknown]
  - Dysphonia [Unknown]
  - Glaucoma [Unknown]
  - Eye irritation [Unknown]
  - Pain [Unknown]
  - Eye pruritus [Unknown]
